FAERS Safety Report 11953233 (Version 4)
Quarter: 2016Q3

REPORT INFORMATION
  Report Type: Spontaneous
  Country: DK (occurrence: DK)
  Receive Date: 20160126
  Receipt Date: 20160908
  Transmission Date: 20161109
  Serious: Yes (Life-Threatening, Hospitalization, Disabling)
  Sender: FDA-Public Use
  Company Number: DK-PFIZER INC-2016034515

PATIENT
  Age: 41 Year
  Sex: Female

DRUGS (1)
  1. CYTOTEC [Suspect]
     Active Substance: MISOPROSTOL
     Indication: ABORTION
     Dosage: DOSE: 3 TABLETS. STRENGTH: 0.2 MG.
     Route: 048
     Dates: start: 20160112

REACTIONS (11)
  - Chest pain [Recovered/Resolved with Sequelae]
  - Bundle branch block right [Recovered/Resolved]
  - Ventricular hypokinesia [Recovered/Resolved]
  - Loss of consciousness [Recovered/Resolved]
  - Ventricular tachycardia [Recovered/Resolved]
  - Product use issue [Recovered/Resolved]
  - Torsade de pointes [Recovered/Resolved]
  - Ejection fraction decreased [Recovered/Resolved]
  - Cardiac arrest [Recovered/Resolved with Sequelae]
  - Pain in extremity [Unknown]
  - Arteriospasm coronary [Not Recovered/Not Resolved]

NARRATIVE: CASE EVENT DATE: 20160112
